FAERS Safety Report 7676172-2 (Version None)
Quarter: 2011Q3

REPORT INFORMATION
  Report Type: 
  Country: None (occurrence: None)
  Receive Date: 20110811
  Receipt Date: 20110802
  Transmission Date: 20111222
  Serious: Yes (Hospitalization)
  Sender: FDA-Public Use
  Company Number: AU-JNJFOC-20110705671

PATIENT
  Sex: Male
  Weight: 120 kg

DRUGS (4)
  1. INVEGA SUSTENNA [Suspect]
     Indication: SCHIZOPHRENIA
     Dosage: MOST RECENT DOSE ON 29-JUN-2011
     Route: 030
     Dates: start: 20110524
  2. DIAZEPAM [Concomitant]
     Indication: ANXIETY
     Dates: start: 20110606
  3. NUROFEN PLUS [Concomitant]
     Indication: PAIN IN EXTREMITY
  4. AMPHETAMINE SULFATE [Suspect]
     Indication: ILL-DEFINED DISORDER
     Route: 042

REACTIONS (1)
  - SCHIZOPHRENIA [None]
